FAERS Safety Report 12210117 (Version 2)
Quarter: 2016Q1

REPORT INFORMATION
  Report Type: Spontaneous
  Country: US (occurrence: US)
  Receive Date: 20160325
  Receipt Date: 20160329
  Transmission Date: 20160526
  Serious: No
  Sender: FDA-Public Use
  Company Number: US-009507513-1603USA011583

PATIENT
  Sex: Female

DRUGS (1)
  1. NEXPLANON [Suspect]
     Active Substance: ETONOGESTREL
     Dosage: 1 DF, UNK, LEFT ARM
     Route: 059
     Dates: start: 20150213, end: 20160128

REACTIONS (7)
  - Crying [Recovered/Resolved]
  - Anxiety [Unknown]
  - Nervousness [Recovered/Resolved]
  - Palpitations [Recovered/Resolved]
  - Implant site pain [Recovered/Resolved]
  - Anger [Recovered/Resolved]
  - Device breakage [Recovered/Resolved]
